FAERS Safety Report 4298022-7 (Version None)
Quarter: 2004Q1

REPORT INFORMATION
  Report Type: 
  Country: None (occurrence: None)
  Receive Date: 20040218
  Receipt Date: 20011002
  Transmission Date: 20041129
  Serious: Yes (Other)
  Sender: FDA-Public Use
  Company Number: US-BRISTOL-MYERS SQUIBB COMPANY-11524568

PATIENT

DRUGS (8)
  1. STADOL [Suspect]
     Route: 045
  2. LORAZEPAM [Concomitant]
  3. LORTAB [Concomitant]
  4. PHENERGAN [Concomitant]
  5. ROXICET [Concomitant]
  6. IMITREX [Concomitant]
  7. AMBIEN [Concomitant]
  8. FIORICET [Concomitant]

REACTIONS (2)
  - DEPENDENCE [None]
  - HEART RATE IRREGULAR [None]
